FAERS Safety Report 8511759-6 (Version None)
Quarter: 2012Q3

REPORT INFORMATION
  Report Type: 
  Country: None (occurrence: None)
  Receive Date: 20120716
  Receipt Date: 20120710
  Transmission Date: 20120928
  Serious: Yes (Other)
  Sender: FDA-Public Use
  Company Number: US-AMGEN-USASP2011031954

PATIENT
  Sex: Male

DRUGS (2)
  1. ENBREL [Suspect]
     Indication: PSORIASIS
     Dosage: 50 MG, QWK
     Dates: start: 20070301
  2. ENBREL [Suspect]
     Indication: PSORIATIC ARTHROPATHY

REACTIONS (6)
  - ARTHRALGIA [None]
  - ERYTHEMA [None]
  - JOINT STIFFNESS [None]
  - NEUROPATHY PERIPHERAL [None]
  - DRUG INEFFECTIVE [None]
  - INSOMNIA [None]
